FAERS Safety Report 8837414 (Version 1)
Quarter: 2012Q4

REPORT INFORMATION
  Report Type: 
  Country: FR (occurrence: FR)
  Receive Date: 20121012
  Receipt Date: 20121012
  Transmission Date: 20130627
  Serious: No
  Sender: FDA-Public Use
  Company Number: FR-JNJFOC-20121001666

PATIENT
  Age: 66 Year
  Sex: Female
  Weight: 55 kg

DRUGS (6)
  1. DUROGESIC [Suspect]
     Indication: PAIN
     Route: 062
     Dates: start: 20120903, end: 20121002
  2. ACTIQ [Concomitant]
     Indication: CANCER PAIN
     Dosage: 3 to 4 lozanges per day
     Route: 048
     Dates: start: 20120903, end: 20120903
  3. ZOPHREN [Concomitant]
     Indication: NAUSEA
     Route: 048
     Dates: start: 20120903, end: 20121002
  4. XANAX [Concomitant]
     Indication: ANXIETY
     Route: 048
     Dates: start: 20120903, end: 20121002
  5. IMOVANE [Concomitant]
     Indication: INSOMNIA
     Route: 048
     Dates: start: 20120903, end: 20121002
  6. LYSANXIA [Concomitant]
     Indication: ANXIETY
     Route: 048
     Dates: start: 20120903, end: 20121002

REACTIONS (1)
  - Inappropriate schedule of drug administration [Recovered/Resolved]
